FAERS Safety Report 23703098 (Version 1)
Quarter: 2024Q2

REPORT INFORMATION
  Report Type: Spontaneous
  Country: DZ (occurrence: DZ)
  Receive Date: 20240403
  Receipt Date: 20240403
  Transmission Date: 20240716
  Serious: Yes (Life-Threatening)
  Sender: FDA-Public Use
  Company Number: DZ-PFIZER INC-202400075722

PATIENT
  Sex: Female

DRUGS (1)
  1. CRIZOTINIB [Suspect]
     Active Substance: CRIZOTINIB
     Dosage: UNK, CYCLIC

REACTIONS (3)
  - Pleural effusion [Unknown]
  - Embolism [Unknown]
  - Neoplasm progression [Unknown]
